FAERS Safety Report 13135794 (Version 2)
Quarter: 2017Q1

REPORT INFORMATION
  Report Type: Report from Study
  Country: CA (occurrence: CA)
  Receive Date: 20170120
  Receipt Date: 20170208
  Transmission Date: 20170428
  Serious: Yes (Other)
  Sender: FDA-Public Use
  Company Number: CA-GILEAD-2017-0253102

PATIENT
  Age: 67 Year
  Sex: Female

DRUGS (1)
  1. LEDIPASVIR/SOFOSBUVIR [Suspect]
     Active Substance: LEDIPASVIR\SOFOSBUVIR
     Indication: CHRONIC HEPATITIS C
     Dosage: UNK
     Route: 048
     Dates: start: 20161024

REACTIONS (5)
  - Confusional state [Unknown]
  - Kidney infection [Unknown]
  - Abdominal distension [Unknown]
  - Cystitis [Unknown]
  - Headache [Unknown]

NARRATIVE: CASE EVENT DATE: 20170106
